FAERS Safety Report 11087370 (Version 3)
Quarter: 2015Q2

REPORT INFORMATION
  Report Type: Spontaneous
  Country: FR (occurrence: None)
  Receive Date: 20150430
  Receipt Date: 20150615
  Transmission Date: 20150821
  Serious: Yes (Hospitalization)
  Sender: FDA-Public Use
  Company Number: FK201501967

PATIENT
  Age: 44 Year

DRUGS (10)
  1. GENTAMICIN PANPHARMA (GENTAMICIN SULFATE) [Concomitant]
  2. FLUOROURACIL ACCORD (FLUOROURACIL) [Suspect]
     Active Substance: FLUOROURACIL
     Indication: CHEMOTHERAPY
  3. CLINDAMYCIN PHOSPHATE. [Suspect]
     Active Substance: CLINDAMYCIN PHOSPHATE
     Indication: ANTIBIOTIC THERAPY
     Route: 042
     Dates: start: 20150403, end: 20150415
  4. FLUOROURACIL ACCORD (FLUOROURACIL) [Suspect]
     Active Substance: FLUOROURACIL
     Indication: PRODUCT USED FOR UNKNOWN INDICATION
     Route: 048
  5. DALACINE (CLINDAMYCIN HYDROCHLORIDE) [Suspect]
     Active Substance: CLINDAMYCIN HYDROCHLORIDE
     Indication: PRODUCT USED FOR UNKNOWN INDICATION
     Route: 048
     Dates: start: 20150410
  6. PIPERACILLIN AND TAZOBACTAM [Suspect]
     Active Substance: PIPERACILLIN SODIUM\TAZOBACTAM SODIUM
     Indication: ANTIBIOTIC THERAPY
     Dates: start: 20150326
  7. OXALIPLATINE HOSPIRA (OXALIPLATIN) [Suspect]
     Active Substance: OXALIPLATIN
     Indication: CHEMOTHERAPY
  8. IRINOTECAN HOSPIRA (IRINOTECAN HYDROCHLORIDE) [Suspect]
     Active Substance: IRINOTECAN HYDROCHLORIDE
     Indication: CHEMOTHERAPY
  9. AMIKACINE MYLAN (AMIKACIN) [Concomitant]
  10. CEFTRIAXONE (CEFTRIAXONE) [Concomitant]
     Active Substance: CEFTRIAXONE

REACTIONS (5)
  - Thrombocytopenia [None]
  - Agranulocytosis [None]
  - Pyrexia [None]
  - Anaemia [None]
  - Cholestasis [None]
